FAERS Safety Report 5463560-8 (Version None)
Quarter: 2007Q3

REPORT INFORMATION
  Report Type: 
  Country: None (occurrence: None)
  Receive Date: 20070919
  Receipt Date: 20070904
  Transmission Date: 20080115
  Serious: Yes (Death, Life-Threatening, Hospitalization, Other)
  Sender: FDA-Public Use
  Company Number: US-JNJFOC-20070804901

PATIENT
  Age: 92 Year
  Sex: Male
  Weight: 84 kg

DRUGS (10)
  1. DACOGEN [Suspect]
     Indication: MYELODYSPLASTIC SYNDROME
     Dosage: 25 MG, 1 IN 8 HOUR, INTRAVENOUS
     Route: 042
     Dates: start: 20070410, end: 20070411
  2. LASIX [Concomitant]
  3. OMEPRAZOLE [Concomitant]
  4. OS-CAL (OS-CAL) [Concomitant]
  5. PLAVIX [Concomitant]
  6. SYNTHROID [Concomitant]
  7. ARANESP [Concomitant]
  8. FERROUS SULFATE TAB [Concomitant]
  9. IMDUR [Concomitant]
  10. POTASSIUM CHLORIDE [Concomitant]

REACTIONS (4)
  - ANAEMIA [None]
  - GENERAL PHYSICAL HEALTH DETERIORATION [None]
  - RENAL FAILURE ACUTE [None]
  - THROMBOCYTOPENIA [None]
